FAERS Safety Report 9537733 (Version 2)
Quarter: 2013Q3

REPORT INFORMATION
  Report Type: Spontaneous
  Country: US (occurrence: US)
  Receive Date: 20130919
  Receipt Date: 20130925
  Transmission Date: 20140515
  Serious: Yes (Other)
  Sender: FDA-Public Use
  Company Number: CHPA2013US013255

PATIENT
  Age: 68 Year
  Sex: Female

DRUGS (3)
  1. EXCEDRIN EXTRA STRENGTH [Suspect]
     Indication: BACK PAIN
     Dosage: 2 DF, PRN
     Route: 048
  2. EXCEDRIN EXTRA STRENGTH [Suspect]
     Indication: BACK PAIN
     Dosage: UNK, UNK
     Route: 048
  3. EXCEDRIN EXTRA STRENGTH [Suspect]
     Indication: BACK PAIN

REACTIONS (3)
  - Hypertension [Recovering/Resolving]
  - Poor quality sleep [Recovered/Resolved]
  - Retching [Recovered/Resolved]
